FAERS Safety Report 9451429 (Version 1)
Quarter: 2013Q3

REPORT INFORMATION
  Report Type: Spontaneous
  Country: US (occurrence: US)
  Receive Date: 20130809
  Receipt Date: 20130809
  Transmission Date: 20140515
  Serious: Yes (Other)
  Sender: FDA-Public Use
  Company Number: US-RB-057025-13

PATIENT
  Age: 30 Year
  Sex: Male

DRUGS (4)
  1. SUBOXONE TABLET [Suspect]
     Indication: DRUG DEPENDENCE
     Dosage: DOSING DETAILS UNKNOWN
     Route: 060
     Dates: end: 201307
  2. SUBOXONE FILM [Suspect]
     Indication: DRUG DEPENDENCE
     Dosage: SUBOXONE FILM. DOSING DETAILS UNKNOWN
     Route: 060
     Dates: end: 201307
  3. ZOLOFT [Suspect]
     Indication: PRODUCT USED FOR UNKNOWN INDICATION
     Dosage: DOSING DETAILS UNKNOWN
     Route: 048
     Dates: start: 201307, end: 201307
  4. GABAPENTIN [Concomitant]
     Indication: RESTLESS LEGS SYNDROME
     Dosage: DOSING DETAILS UNKNOWN
     Route: 048

REACTIONS (6)
  - Suicidal ideation [Recovered/Resolved]
  - Substance abuse [Recovered/Resolved]
  - Therapeutic response unexpected [Recovered/Resolved]
  - Diarrhoea [Recovered/Resolved]
  - Anger [Recovered/Resolved]
  - Agitation [Recovered/Resolved]
